FAERS Safety Report 4412704-5 (Version None)
Quarter: 2004Q2

REPORT INFORMATION
  Report Type: 
  Country: None (occurrence: None)
  Receive Date: 20040630
  Receipt Date: 20040329
  Transmission Date: 20050107
  Serious: No
  Sender: FDA-Public Use
  Company Number: 04P-163-0254870

PATIENT
  Age: 63 Year
  Sex: Female
  Weight: 80.2867 kg

DRUGS (8)
  1. HUMIRA [Suspect]
     Indication: RHEUMATOID ARTHRITIS
     Dosage: 40 MG, 1 IN 2 WK, SUBCUTANEOUS
     Route: 058
     Dates: start: 20031201
  2. METHOTREXATE SODIUM [Concomitant]
  3. PREDNISONE [Concomitant]
  4. CYCLOBENZAPRINE HYDROCHLORIDE [Concomitant]
  5. DICLOFENAC SODIUM [Concomitant]
  6. PROPACET 100 [Concomitant]
  7. NIFEDIPINE [Concomitant]
  8. ATORVASTATIN [Concomitant]

REACTIONS (1)
  - INJECTION SITE BURNING [None]
